FAERS Safety Report 15108023 (Version 3)
Quarter: 2018Q3

REPORT INFORMATION
  Report Type: Spontaneous
  Country: JP (occurrence: JP)
  Receive Date: 20180704
  Receipt Date: 20180906
  Transmission Date: 20181010
  Serious: Yes (Hospitalization)
  Sender: FDA-Public Use
  Company Number: JP-UCBSA-2018029378

PATIENT

DRUGS (17)
  1. XYZAL [Suspect]
     Active Substance: LEVOCETIRIZINE DIHYDROCHLORIDE
     Indication: RHINORRHOEA
     Dosage: UNK
     Route: 048
     Dates: start: 20180228
  2. ASVERIN (TIPEPIDINE HIBENZATE) [Concomitant]
     Active Substance: TIPEPIDINE HIBENZATE
     Indication: PRODUCT USED FOR UNKNOWN INDICATION
     Dosage: UNK
     Dates: start: 2018
  3. CARBOCISTEINE [Suspect]
     Active Substance: CARBOCYSTEINE
     Indication: RHINORRHOEA
     Dosage: UNK
     Route: 048
     Dates: start: 20180228
  4. CARBOCISTEINE [Suspect]
     Active Substance: CARBOCYSTEINE
     Dosage: 200 MG, ONCE DAILY (QD)
     Route: 048
     Dates: start: 2018
  5. ANHIBA [Concomitant]
     Active Substance: ACETAMINOPHEN
     Indication: PRODUCT USED FOR UNKNOWN INDICATION
     Dosage: SINGLE
     Dates: start: 20180713
  6. CARBOCISTEINE [Suspect]
     Active Substance: CARBOCYSTEINE
     Indication: COUGH
     Dosage: 250 MG, ONCE DAILY (QD)
     Route: 048
     Dates: start: 20180614, end: 20180623
  7. ASVERIN (TIPEPIDINE HIBENZATE) [Suspect]
     Active Substance: TIPEPIDINE HIBENZATE
     Dosage: 16 MG, UNK
     Route: 048
     Dates: start: 20180718
  8. XYZAL [Suspect]
     Active Substance: LEVOCETIRIZINE DIHYDROCHLORIDE
     Indication: COUGH
     Dosage: 2.5 MG, ONCE DAILY (QD)
     Route: 048
     Dates: start: 20180622, end: 20180623
  9. ASVERIN (TIPEPIDINE HIBENZATE) [Suspect]
     Active Substance: TIPEPIDINE HIBENZATE
     Indication: COUGH
     Dosage: 10 MG, ONCE DAILY (QD)
     Route: 048
     Dates: start: 20180614, end: 20180623
  10. CARBOCISTEINE [Concomitant]
     Active Substance: CARBOCYSTEINE
     Indication: PRODUCT USED FOR UNKNOWN INDICATION
     Dosage: UNK
     Dates: start: 2018
  11. ANHIBA [Concomitant]
     Active Substance: ACETAMINOPHEN
     Dosage: SINGLE
     Dates: start: 20180716
  12. CARBOCISTEINE [Suspect]
     Active Substance: CARBOCYSTEINE
     Dosage: UNK
     Route: 048
     Dates: start: 20180713
  13. CARBOCISTEINE [Suspect]
     Active Substance: CARBOCYSTEINE
     Dosage: 100 MG, 3X/DAY (TID)
     Route: 048
     Dates: start: 20180718
  14. XYZAL [Suspect]
     Active Substance: LEVOCETIRIZINE DIHYDROCHLORIDE
     Dosage: 2 MG, UNK
     Route: 048
     Dates: start: 20180713
  15. ASVERIN (TIPEPIDINE HIBENZATE) [Suspect]
     Active Substance: TIPEPIDINE HIBENZATE
     Indication: RHINORRHOEA
     Dosage: UNK
     Route: 048
     Dates: start: 20180228
  16. ASVERIN (TIPEPIDINE HIBENZATE) [Suspect]
     Active Substance: TIPEPIDINE HIBENZATE
     Dosage: 16 MG, ONCE DAILY (QD)
     Route: 048
     Dates: start: 2018
  17. ASVERIN (TIPEPIDINE HIBENZATE) [Suspect]
     Active Substance: TIPEPIDINE HIBENZATE
     Dosage: UNK
     Route: 048
     Dates: start: 20180713

REACTIONS (3)
  - Hypoglycaemia [Recovered/Resolved]
  - Asthenia [Unknown]
  - Pyrexia [Recovered/Resolved]

NARRATIVE: CASE EVENT DATE: 20180624
